FAERS Safety Report 8540079-9 (Version None)
Quarter: 2012Q3

REPORT INFORMATION
  Report Type: 
  Country: None (occurrence: None)
  Receive Date: 20120726
  Receipt Date: 20120718
  Transmission Date: 20120928
  Serious: Yes (Other)
  Sender: FDA-Public Use
  Company Number: GB-UCBSA-062387

PATIENT

DRUGS (3)
  1. PREDNISONE [Suspect]
     Dosage: UNKNOWN DOSE
  2. CIMZIA [Suspect]
     Indication: RHEUMATOID ARTHRITIS
     Dosage: UNKNOWN
  3. ARAVA [Concomitant]
     Indication: RHEUMATOID ARTHRITIS
     Dosage: UNKNOWN DOSE

REACTIONS (3)
  - EYE INFLAMMATION [None]
  - DYSPNOEA [None]
  - OPTIC NERVE SHEATH HAEMORRHAGE [None]
